FAERS Safety Report 4307466-6 (Version None)
Quarter: 2004Q1

REPORT INFORMATION
  Report Type: 
  Country: None (occurrence: None)
  Receive Date: 20040226
  Receipt Date: 20040213
  Transmission Date: 20041129
  Serious: Yes (Hospitalization)
  Sender: FDA-Public Use
  Company Number: 2004010201

PATIENT
  Age: 62 Year
  Sex: Male

DRUGS (6)
  1. LIPITOR [Suspect]
     Indication: ILL-DEFINED DISORDER
     Dosage: ORAL
     Route: 048
  2. SOLITA-T 3G (SODIUM LACTATE, POTASSIUM CHLORIDE, SODIUM CHLORIDE, CARB [Concomitant]
  3. HEPARIN SODIUM [Concomitant]
  4. NITROGLYCERIN [Concomitant]
  5. LIDOCAINE [Concomitant]
  6. IOHEXOL (IOHEXOL) [Concomitant]

REACTIONS (3)
  - HYPOAESTHESIA [None]
  - PAIN IN EXTREMITY [None]
  - VASCULAR PSEUDOANEURYSM [None]
